FAERS Safety Report 13546720 (Version 1)
Quarter: 2017Q2

REPORT INFORMATION
  Report Type: Spontaneous
  Country: US (occurrence: US)
  Receive Date: 20170515
  Receipt Date: 20170515
  Transmission Date: 20170830
  Serious: Yes (Life-Threatening, Disabling)
  Sender: FDA-Public Use
  Company Number: None

PATIENT
  Age: 26 Year
  Sex: Female
  Weight: 78.3 kg

DRUGS (8)
  1. OMEPROZOL [Concomitant]
  2. MEXILETINE HCL [Suspect]
     Active Substance: MEXILETINE HYDROCHLORIDE
     Indication: PAIN
     Dosage: ?          QUANTITY:10 CAPSULE(S);?
     Route: 048
     Dates: start: 20170508, end: 20170514
  3. MODAFINIL. [Concomitant]
     Active Substance: MODAFINIL
  4. FISH OIL [Concomitant]
     Active Substance: FISH OIL
  5. VENLAFAXINE [Concomitant]
     Active Substance: VENLAFAXINE HYDROCHLORIDE
  6. ETOCLOLAC [Concomitant]
  7. MONTELUKAST [Concomitant]
     Active Substance: MONTELUKAST SODIUM
  8. LATUDA [Concomitant]
     Active Substance: LURASIDONE HYDROCHLORIDE

REACTIONS (2)
  - Panic attack [None]
  - Depression [None]

NARRATIVE: CASE EVENT DATE: 20170513
